FAERS Safety Report 20156261 (Version 2)
Quarter: 2021Q4

REPORT INFORMATION
  Report Type: Spontaneous
  Country: US (occurrence: US)
  Receive Date: 20211207
  Receipt Date: 20211221
  Transmission Date: 20220303
  Serious: Yes (Hospitalization, Other)
  Sender: FDA-Public Use
  Company Number: US-JNJFOC-20211201502

PATIENT
  Age: 84 Year
  Sex: Male
  Weight: 68.100 kg

DRUGS (4)
  1. XARELTO [Suspect]
     Active Substance: RIVAROXABAN
     Indication: Atrial fibrillation
     Dosage: PRESCRIPTION NUMBER - 2850941
     Route: 048
     Dates: start: 2018
  2. XARELTO [Suspect]
     Active Substance: RIVAROXABAN
     Indication: Cerebrovascular accident prophylaxis
  3. TOPROL XL [Concomitant]
     Active Substance: METOPROLOL SUCCINATE
  4. LIQUID IRON [Concomitant]
     Indication: Mineral supplementation

REACTIONS (5)
  - Septic shock [Unknown]
  - Hip fracture [Unknown]
  - Haemorrhage [Not Recovered/Not Resolved]
  - Fall [Unknown]
  - Urinary tract infection [Unknown]

NARRATIVE: CASE EVENT DATE: 20200227
